FAERS Safety Report 22291075 (Version 3)
Quarter: 2023Q2

REPORT INFORMATION
  Report Type: Report from Study
  Country: IT (occurrence: IT)
  Receive Date: 20230506
  Receipt Date: 20230623
  Transmission Date: 20230721
  Serious: Yes (Hospitalization)
  Sender: FDA-Public Use
  Company Number: IT-002147023-NVSC2023IT101955

PATIENT
  Age: 57 Year
  Sex: Female

DRUGS (1)
  1. SIPONIMOD [Suspect]
     Active Substance: SIPONIMOD
     Indication: Multiple sclerosis
     Dosage: 2 MG, QD
     Route: 048
     Dates: start: 202201

REACTIONS (4)
  - Ulna fracture [Recovered/Resolved]
  - Fall [Unknown]
  - Vertigo [Unknown]
  - Dizziness [Not Recovered/Not Resolved]
